FAERS Safety Report 10917808 (Version 2)
Quarter: 2015Q2

REPORT INFORMATION
  Report Type: Spontaneous
  Country: CO (occurrence: CO)
  Receive Date: 20150316
  Receipt Date: 20150420
  Transmission Date: 20150821
  Serious: Yes (Other)
  Sender: FDA-Public Use
  Company Number: CO-GLAXOSMITHKLINE-CO2015GSK033251

PATIENT
  Age: 30 Year
  Sex: Male
  Weight: 70 kg

DRUGS (2)
  1. KIVEXA [Suspect]
     Active Substance: ABACAVIR SULFATE\LAMIVUDINE
     Indication: HIV TEST POSITIVE
     Dosage: UNK
     Route: 048
     Dates: start: 20150126, end: 20150210
  2. EFAVIRENZ [Concomitant]
     Active Substance: EFAVIRENZ
     Indication: HIV TEST POSITIVE
     Dosage: 600 MG, QD
     Dates: start: 20150126, end: 20150210

REACTIONS (2)
  - Hypersensitivity [Recovered/Resolved]
  - Urticaria [Recovered/Resolved]

NARRATIVE: CASE EVENT DATE: 20150126
